FAERS Safety Report 6862351-0 (Version None)
Quarter: 2010Q3

REPORT INFORMATION
  Report Type: 
  Country: None (occurrence: None)
  Receive Date: 20100716
  Receipt Date: 20100708
  Transmission Date: 20110219
  Serious: Yes (Hospitalization, Other)
  Sender: FDA-Public Use
  Company Number: 20108435

PATIENT
  Sex: Male

DRUGS (1)
  1. LIORESAL [Suspect]
     Indication: MUSCLE SPASTICITY
     Dosage: 1000 MCG, DAILY, INTRATHECAL
     Route: 037

REACTIONS (7)
  - CELLULITIS [None]
  - CONFUSIONAL STATE [None]
  - DEVICE POWER SOURCE ISSUE [None]
  - HALLUCINATION [None]
  - MALAISE [None]
  - SEPSIS [None]
  - WITHDRAWAL SYNDROME [None]
